FAERS Safety Report 8026189-3 (Version None)
Quarter: 2012Q1

REPORT INFORMATION
  Report Type: 
  Country: None (occurrence: None)
  Receive Date: 20120105
  Receipt Date: 20110207
  Transmission Date: 20120608
  Serious: No
  Sender: FDA-Public Use
  Company Number: US-ABBOTT-11P-163-0704392-00

PATIENT
  Sex: Female
  Weight: 72.64 kg

DRUGS (3)
  1. SOTALOL HCL [Concomitant]
     Indication: ARRHYTHMIA
  2. LOPID [Concomitant]
     Indication: BLOOD CHOLESTEROL INCREASED
  3. SYNTHROID [Suspect]
     Indication: GOITRE
     Dates: start: 19900101

REACTIONS (5)
  - VERTIGO [None]
  - DYSPHAGIA [None]
  - GOITRE [None]
  - GAIT DISTURBANCE [None]
  - OROPHARYNGEAL DISCOMFORT [None]
